FAERS Safety Report 6141067-2 (Version None)
Quarter: 2009Q2

REPORT INFORMATION
  Report Type: 
  Country: None (occurrence: None)
  Receive Date: 20090402
  Receipt Date: 20090326
  Transmission Date: 20091009
  Serious: Yes (Hospitalization)
  Sender: FDA-Public Use
  Company Number: US-BRISTOL-MYERS SQUIBB COMPANY-14235642

PATIENT
  Age: 72 Year
  Sex: Male
  Weight: 81 kg

DRUGS (12)
  1. DASATINIB [Suspect]
     Indication: PROSTATE CANCER
     Dosage: INTERRUPTED ON 18JUN08
     Route: 048
     Dates: start: 20080430
  2. SIMVASTATIN [Concomitant]
     Dosage: STR: 40MG TAB 40MG = 1 TAB QPM
     Route: 048
  3. OXYCONTIN [Concomitant]
  4. CLONAZEPAM [Concomitant]
  5. ASPIRIN [Concomitant]
     Dosage: FORMULATION: TAB(325MG)
     Route: 048
  6. DOCUSATE [Concomitant]
     Dosage: FORM: CAPSULE(250MG)
     Route: 048
  7. HEPARIN [Concomitant]
     Dosage: 1DF=5000UNITS/ML(5000UNITS=1ML) FORM: INJ
     Route: 058
  8. OXYCODONE HCL [Concomitant]
     Dosage: STRENGTH:10MG TAB 30MG=3TABS 5-10MG PO Q4H PRN
     Route: 048
  9. PANTOPRAZOLE SODIUM [Concomitant]
     Dosage: STR:40MG TAB. 1 TAB = 40MG
     Route: 048
  10. PNEUMOCOCCAL VACCINE [Concomitant]
     Dosage: 1DF=1 EACH MISC QAM 0.5ML INJ ONCE PRN
  11. SENNA [Concomitant]
     Dosage: STR: 8.6MG TAB 1DF=2 TAB
     Route: 048
  12. ACETAMINOPHEN [Concomitant]
     Dosage: STR: 650MG 650MG=2 TABS Q4H
     Route: 048

REACTIONS (2)
  - CARDIAC FAILURE CONGESTIVE [None]
  - HYPOXIA [None]
